FAERS Safety Report 4519897-X (Version None)
Quarter: 2004Q4

REPORT INFORMATION
  Report Type: 
  Country: None (occurrence: None)
  Receive Date: 20041202
  Receipt Date: 20041202
  Transmission Date: 20050328
  Serious: Yes (Hospitalization)
  Sender: FDA-Public Use
  Company Number: None

PATIENT
  Sex: Male

DRUGS (20)
  1. HEPARIN [Suspect]
     Indication: PHLEBOTHROMBOSIS
     Dosage: PROTOCOL    INTRAVENOUS
     Route: 042
     Dates: start: 20040806, end: 20040811
  2. HEPARIN [Suspect]
     Indication: SUPERIOR VENA CAVAL OCCLUSION
     Dosage: PROTOCOL    INTRAVENOUS
     Route: 042
     Dates: start: 20040806, end: 20040811
  3. ALBUTEROL [Concomitant]
  4. AMPHOTERICIN B [Concomitant]
  5. AZITHROMYCIN [Concomitant]
  6. PRIMAXIN [Concomitant]
  7. CITALOPRAM [Concomitant]
  8. DOCUSATE [Concomitant]
  9. FERROUS SULFATE TAB [Concomitant]
  10. GENTAMICIN [Concomitant]
  11. HALOPERIDOL [Concomitant]
  12. INSULIN [Concomitant]
  13. IPRATROPIUM BROMIDE [Concomitant]
  14. LACTOBACILLUS [Concomitant]
  15. LORAZEPAM [Concomitant]
  16. METRONIDAZOLE [Concomitant]
  17. MULTI-VITAMIN [Concomitant]
  18. OMEPRAZOLE [Concomitant]
  19. QUETIAPINE [Concomitant]
  20. BACTRIM [Concomitant]

REACTIONS (1)
  - THROMBOCYTOPENIA [None]
